FAERS Safety Report 18910473 (Version 1)
Quarter: 2021Q1

REPORT INFORMATION
  Report Type: Report from Study
  Country: US (occurrence: US)
  Receive Date: 20210218
  Receipt Date: 20210218
  Transmission Date: 20210420
  Serious: Yes (Other)
  Sender: FDA-Public Use
  Company Number: US-EMD SERONO-9002964

PATIENT
  Age: 56 Year
  Sex: Female

DRUGS (2)
  1. IRON [Concomitant]
     Active Substance: IRON
     Indication: ANAEMIA
     Route: 048
  2. REBIF [Suspect]
     Active Substance: INTERFERON BETA-1A
     Indication: MULTIPLE SCLEROSIS
     Dosage: MANUAL
     Route: 058
     Dates: start: 20071116

REACTIONS (10)
  - Visual impairment [Unknown]
  - Influenza like illness [Unknown]
  - Erythema [Recovering/Resolving]
  - Knee operation [Recovering/Resolving]
  - Injection site bruising [Recovering/Resolving]
  - Herpes zoster [Recovering/Resolving]
  - Liver function test increased [Unknown]
  - Injection site discolouration [Unknown]
  - Haemoglobin decreased [Not Recovered/Not Resolved]
  - Arthralgia [Recovering/Resolving]

NARRATIVE: CASE EVENT DATE: 201710
